FAERS Safety Report 8549254-0 (Version None)
Quarter: 2012Q3

REPORT INFORMATION
  Report Type: 
  Country: None (occurrence: None)
  Receive Date: 20120730
  Receipt Date: 20120727
  Transmission Date: 20120928
  Serious: Yes (Death, Hospitalization, Other)
  Sender: FDA-Public Use
  Company Number: PHHY2012TH018699

PATIENT
  Sex: Male

DRUGS (5)
  1. CYTARABINE [Concomitant]
     Indication: CHEMOTHERAPY
     Dosage: 165 MG, PER DAY
     Route: 042
     Dates: start: 20111209, end: 20111215
  2. IMATINIB MESYLATE [Suspect]
     Indication: CHRONIC MYELOID LEUKAEMIA
     Dosage: 600 MG, PER DAY
     Route: 048
     Dates: start: 20120110
  3. METRONIDAZOLE [Concomitant]
     Indication: BRAIN ABSCESS
     Dosage: 500 MG, EVERY 8 HOURS
     Route: 042
     Dates: start: 20120302
  4. IDARUBICIN HCL [Concomitant]
     Dosage: 10 MG, UNK
     Route: 042
  5. CEFTRIAXONE [Concomitant]
     Dosage: 2 G, EVERY 12 HOURS
     Route: 042

REACTIONS (5)
  - HEADACHE [None]
  - SEPSIS [None]
  - BRAIN ABSCESS [None]
  - BLAST CRISIS IN MYELOGENOUS LEUKAEMIA [None]
  - METASTASES TO BONE [None]
